FAERS Safety Report 23294086 (Version 1)
Quarter: 2023Q4

REPORT INFORMATION
  Report Type: Spontaneous
  Country: US (occurrence: US)
  Receive Date: 20231213
  Receipt Date: 20231213
  Transmission Date: 20240110
  Serious: Yes (Other)
  Sender: FDA-Public Use
  Company Number: US-NEUROCRINE BIOSCIENCES INC.-2023NBI10896

PATIENT
  Sex: Female

DRUGS (1)
  1. ONGENTYS [Suspect]
     Active Substance: OPICAPONE
     Indication: Product used for unknown indication
     Dosage: UNK, UNKNOWN
     Route: 065

REACTIONS (1)
  - Delirium [Unknown]

NARRATIVE: CASE EVENT DATE: 20231101
